FAERS Safety Report 4757839-2 (Version None)
Quarter: 2005Q3

REPORT INFORMATION
  Report Type: 
  Country: None (occurrence: None)
  Receive Date: 20050830
  Receipt Date: 20050816
  Transmission Date: 20060218
  Serious: No
  Sender: FDA-Public Use
  Company Number: 2005-131775-NL

PATIENT
  Age: 53 Year
  Sex: Male

DRUGS (4)
  1. ROCURONIUM [Suspect]
     Indication: DRUG ADMINISTRATION ERROR
     Dosage: 100 MG ONCE EPIDURAL
     Route: 008
  2. MORPHINE [Concomitant]
  3. MIDAZOLAM [Concomitant]
  4. ATROPINE [Concomitant]

REACTIONS (8)
  - DRUG ADMINISTRATION ERROR [None]
  - DYSPNOEA [None]
  - INCORRECT DRUG DOSAGE FORM ADMINISTERED [None]
  - INJECTION SITE IRRITATION [None]
  - INJECTION SITE PAIN [None]
  - MIOSIS [None]
  - NEUROMUSCULAR BLOCKADE [None]
  - SPEECH DISORDER [None]
